FAERS Safety Report 7889430-3 (Version None)
Quarter: 2011Q4

REPORT INFORMATION
  Report Type: 
  Country: None (occurrence: None)
  Receive Date: 20111103
  Receipt Date: 20111031
  Transmission Date: 20120403
  Serious: Yes (Other)
  Sender: FDA-Public Use
  Company Number: US-PFIZER INC-2011266519

PATIENT
  Sex: Female
  Weight: 67.12 kg

DRUGS (5)
  1. LIPITOR [Suspect]
     Indication: MYOCARDIAL INFARCTION
  2. HYDROXYUREA [Concomitant]
     Dosage: UNK
  3. PLAVIX [Concomitant]
     Dosage: UNK
  4. LIPITOR [Suspect]
     Indication: COAGULOPATHY
     Dosage: 5 MG, 1X/DAY
     Route: 048
  5. TOPROL-XL [Concomitant]
     Dosage: UNK

REACTIONS (2)
  - BODY HEIGHT DECREASED [None]
  - CARDIAC MURMUR [None]
